FAERS Safety Report 6428494-0 (Version None)
Quarter: 2009Q4

REPORT INFORMATION
  Report Type: 
  Country: None (occurrence: None)
  Receive Date: 20091104
  Receipt Date: 20091104
  Transmission Date: 20100525
  Serious: No
  Sender: FDA-Public Use
  Company Number: None

PATIENT

DRUGS (1)
  1. DEFERASIROX [Suspect]
     Indication: IRON OVERLOAD
     Dosage: 1500 MG EVERYDAY PO
     Route: 048
     Dates: start: 20080818, end: 20081022

REACTIONS (2)
  - BLOOD CREATININE INCREASED [None]
  - BLOOD UREA INCREASED [None]
